FAERS Safety Report 4840475-7 (Version None)
Quarter: 2005Q4

REPORT INFORMATION
  Report Type: 
  Country: None (occurrence: None)
  Receive Date: 20051130
  Receipt Date: 20050801
  Transmission Date: 20060501
  Serious: No
  Sender: FDA-Public Use
  Company Number: US-BRISTOL-MYERS SQUIBB COMPANY-13058193

PATIENT
  Age: 75 Year
  Sex: Female
  Weight: 58 kg

DRUGS (3)
  1. ERBITUX [Suspect]
     Indication: COLON CANCER
     Route: 041
     Dates: start: 20050711, end: 20050829
  2. IRINOTECAN HCL [Concomitant]
     Dates: start: 20050801
  3. BENADRYL [Concomitant]
     Indication: PREMEDICATION
     Route: 042
     Dates: start: 20050711, end: 20050829

REACTIONS (2)
  - INCORRECT DRUG ADMINISTRATION RATE [None]
  - NO ADVERSE EFFECT [None]
